FAERS Safety Report 7313960-6 (Version None)
Quarter: 2011Q1

REPORT INFORMATION
  Report Type: 
  Country: None (occurrence: None)
  Receive Date: 20110225
  Receipt Date: 20110211
  Transmission Date: 20110831
  Serious: Yes (Hospitalization)
  Sender: FDA-Public Use
  Company Number: PHHY2010FR43656

PATIENT
  Sex: Male

DRUGS (3)
  1. CYCLOSPORINE [Concomitant]
     Dosage: UNK
     Dates: end: 20090101
  2. GLEEVEC [Suspect]
     Dosage: 100 MG/DAY
  3. GLEEVEC [Suspect]
     Indication: CHRONIC MYELOID LEUKAEMIA
     Dosage: 200 MG/DAY
     Dates: start: 20080505, end: 20090101

REACTIONS (14)
  - PYREXIA [None]
  - PERSECUTORY DELUSION [None]
  - LOSS OF CONSCIOUSNESS [None]
  - PANIC ATTACK [None]
  - STATUS EPILEPTICUS [None]
  - EPSTEIN-BARR VIRUS INFECTION [None]
  - ENCEPHALOPATHY [None]
  - ABNORMAL BEHAVIOUR [None]
  - ENCEPHALITIS [None]
  - CONFUSIONAL STATE [None]
  - AGITATION [None]
  - MALAISE [None]
  - AMNESTIC DISORDER [None]
  - URAEMIC ENCEPHALOPATHY [None]
